FAERS Safety Report 25012227 (Version 7)
Quarter: 2025Q4

REPORT INFORMATION
  Report Type: Report from Study
  Country: US (occurrence: US)
  Receive Date: 20250226
  Receipt Date: 20251009
  Transmission Date: 20260119
  Serious: Yes (Hospitalization)
  Sender: TAKEDA
  Company Number: US-TAKEDA-2025TUS020318

PATIENT
  Age: 12 Year
  Sex: Male

DRUGS (6)
  1. LANADELUMAB [Suspect]
     Active Substance: LANADELUMAB
     Indication: Hereditary angioedema
     Dosage: 300 MILLIGRAM, Q2WEEKS
  2. LANADELUMAB [Suspect]
     Active Substance: LANADELUMAB
     Dosage: UNK UNK, Q2WEEKS
  3. KALBITOR [Suspect]
     Active Substance: ECALLANTIDE
     Indication: Hereditary angioedema
     Dosage: 3 MILLILITER
  4. KALBITOR [Suspect]
     Active Substance: ECALLANTIDE
     Dosage: 10 MILLIGRAM
  5. KALBITOR [Suspect]
     Active Substance: ECALLANTIDE
     Dosage: UNK
  6. KALBITOR [Suspect]
     Active Substance: ECALLANTIDE
     Dosage: UNK

REACTIONS (3)
  - Hereditary angioedema [Not Recovered/Not Resolved]
  - Injection site swelling [Unknown]
  - Ear infection [Unknown]

NARRATIVE: CASE EVENT DATE: 20250211
